FAERS Safety Report 5165698-1 (Version None)
Quarter: 2006Q4

REPORT INFORMATION
  Report Type: 
  Country: None (occurrence: None)
  Receive Date: 20061128
  Receipt Date: 20061115
  Transmission Date: 20070319
  Serious: Yes (Other)
  Sender: FDA-Public Use
  Company Number: 2006143985

PATIENT
  Age: 58 Year
  Sex: Male

DRUGS (1)
  1. DILANTIN [Suspect]
     Indication: SURGERY
     Dosage: 300 MG (100 MG, 3 IN 1 D)

REACTIONS (2)
  - APLASIA PURE RED CELL [None]
  - RENAL CYST [None]
